FAERS Safety Report 25046316 (Version 6)
Quarter: 2025Q3

REPORT INFORMATION
  Report Type: Report from Study
  Country: None (occurrence: JP)
  Receive Date: 20250306
  Receipt Date: 20250929
  Transmission Date: 20251020
  Serious: Yes (Hospitalization, Other)
  Sender: ALNYLAM PHARMACEUTICALS
  Company Number: JP-ALNYLAM PHARMACEUTICALS, INC.-ALN-2023-004923

PATIENT
  Age: 90 Year
  Weight: 34.8 kg

DRUGS (26)
  1. ONPATTRO [Suspect]
     Active Substance: PATISIRAN SODIUM
     Indication: Hereditary neuropathic amyloidosis
  2. ONPATTRO [Suspect]
     Active Substance: PATISIRAN SODIUM
     Dosage: 10.2 MILLIGRAM, Q3W
  3. ONPATTRO [Suspect]
     Active Substance: PATISIRAN SODIUM
  4. DECADRON [Concomitant]
     Active Substance: DEXAMETHASONE
     Indication: Prophylaxis
     Dosage: 6.6 MILLIGRAM, SINGLE
  5. POLARAMINE [Concomitant]
     Active Substance: DEXCHLORPHENIRAMINE MALEATE
     Indication: Prophylaxis
     Dosage: 5 MILLIGRAM, SINGLE
  6. FAMOTIDINE [Concomitant]
     Active Substance: FAMOTIDINE
     Indication: Prophylaxis
     Dosage: 20 MILLIGRAM, SINGLE
  7. MIROGABALIN BESYLATE [Concomitant]
     Active Substance: MIROGABALIN BESYLATE
     Indication: Hereditary neuropathic amyloidosis
     Dosage: 10 MILLIGRAM, BID
     Route: 065
  8. MIROGABALIN BESYLATE [Concomitant]
     Active Substance: MIROGABALIN BESYLATE
     Indication: Neuralgia
  9. METHYLCOBALAMIN [Concomitant]
     Active Substance: METHYLCOBALAMIN
     Indication: Hereditary neuropathic amyloidosis
     Dosage: 500 MICROGRAM, BID
     Route: 065
  10. METHYLCOBALAMIN [Concomitant]
     Active Substance: METHYLCOBALAMIN
     Indication: Neuropathy peripheral
     Dosage: 0.5 MILLIGRAM, TID
     Route: 065
  11. TOCOPHERYL NICOTINATE, D-.ALPHA. [Concomitant]
     Active Substance: TOCOPHERYL NICOTINATE, D-.ALPHA.
     Indication: Hereditary neuropathic amyloidosis
     Dosage: 100 MILLIGRAM, BID
     Route: 065
  12. CALONAL [Concomitant]
     Active Substance: ACETAMINOPHEN
     Indication: Hereditary neuropathic amyloidosis
     Dosage: 200 MILLIGRAM, BID
     Route: 065
  13. CALONAL [Concomitant]
     Active Substance: ACETAMINOPHEN
     Indication: Neuralgia
  14. LANSOPRAZOLE [Concomitant]
     Active Substance: LANSOPRAZOLE
     Indication: Gastrooesophageal reflux disease
     Dosage: 15 MILLIGRAM, QD
     Route: 065
  15. VITAMINS [Concomitant]
     Active Substance: VITAMINS
     Indication: Vitamin supplementation
     Dosage: 1 GRAM, QD
     Route: 065
  16. SHAKUYAKUKANZOTO [Concomitant]
     Active Substance: HERBALS
     Indication: Muscle spasms
     Dosage: 2.5 GRAM, QD
     Route: 065
  17. SHAKUYAKUKANZOTO [Concomitant]
     Active Substance: HERBALS
     Dosage: 2.5 GRAM, BID
     Route: 065
  18. DIETARY SUPPLEMENT\PROBIOTICS [Concomitant]
     Active Substance: DIETARY SUPPLEMENT\PROBIOTICS NOS
     Indication: Diarrhoea
     Dosage: 1 TABLET, TID
  19. DIETARY SUPPLEMENT\PROBIOTICS [Concomitant]
     Active Substance: DIETARY SUPPLEMENT\PROBIOTICS NOS
     Indication: Gastroenteritis
  20. AMLODIPINE [Concomitant]
     Active Substance: AMLODIPINE BESYLATE
     Indication: Hypertension
     Dosage: 2.5 MILLIGRAM, BID
     Route: 065
  21. AMLODIPINE [Concomitant]
     Active Substance: AMLODIPINE BESYLATE
     Dosage: 2.5 MILLIGRAM, QD
     Route: 065
  22. POTASSIUM ASPARTATE [Concomitant]
     Active Substance: POTASSIUM ASPARTATE
     Indication: Hypokalaemia
     Dosage: 300 MILLIGRAM, BID
     Route: 065
  23. POTASSIUM ASPARTATE [Concomitant]
     Active Substance: POTASSIUM ASPARTATE
     Dosage: 300 MILLIGRAM, TID
     Route: 065
  24. Am [Concomitant]
     Indication: Gastritis
     Dosage: 1.3 GRAM, TID
     Route: 065
  25. LOXOPROFEN SODIUM DIHYDRATE [Concomitant]
     Active Substance: LOXOPROFEN SODIUM DIHYDRATE
     Indication: Arthralgia
     Dosage: 1 SHEET, QD
     Route: 065
  26. DEXAMETHASONE SODIUM PHOSPHATE [Concomitant]
     Active Substance: DEXAMETHASONE SODIUM PHOSPHATE
     Indication: Premedication
     Route: 065

REACTIONS (10)
  - Cerebrovascular accident [Recovered/Resolved]
  - Hypokalaemia [Recovered/Resolved]
  - Cardiac failure [Recovering/Resolving]
  - Vomiting [Recovered/Resolved]
  - Gastritis [Recovering/Resolving]
  - Lower limb fracture [Recovered/Resolved]
  - Hypertension [Recovering/Resolving]
  - Urinary tract infection [Recovered/Resolved]
  - Urinary tract infection [Recovering/Resolving]
  - Therapy cessation [Unknown]
